FAERS Safety Report 10379612 (Version 7)
Quarter: 2015Q3

REPORT INFORMATION
  Report Type: Report from Study
  Country: DE (occurrence: DE)
  Receive Date: 20140812
  Receipt Date: 20150928
  Transmission Date: 20151125
  Serious: Yes (Hospitalization)
  Sender: FDA-Public Use
  Company Number: PHHO2014DE009961

PATIENT
  Age: 58 Year
  Sex: Male
  Weight: 90 kg

DRUGS (16)
  1. EVEROLIMUS [Suspect]
     Active Substance: EVEROLIMUS
     Indication: RENAL TRANSPLANT
     Dosage: 1.5 MG, BID
     Route: 048
     Dates: start: 20140613, end: 20140728
  2. SANDIMMUN OPTORAL [Suspect]
     Active Substance: CYCLOSPORINE
     Indication: RENAL TRANSPLANT
     Dosage: 170 MG, BID
     Route: 048
     Dates: start: 20140613
  3. CONCOR [Concomitant]
     Active Substance: BISOPROLOL FUMARATE
     Indication: HYPERTENSION
     Dosage: 10 MG, QD
     Route: 065
  4. EVEROLIMUS [Suspect]
     Active Substance: EVEROLIMUS
     Dosage: 1.25 MG, BID
     Route: 048
     Dates: start: 20140818
  5. TOREM [Concomitant]
     Active Substance: TORSEMIDE
     Indication: RENAL FAILURE
     Dosage: 5 MG, QD
     Route: 065
  6. DELIX [Concomitant]
     Active Substance: RAMIPRIL
     Indication: HYPERTENSION
     Dosage: 5 MG, BID (1-0-1)
     Route: 048
  7. SIMULECT [Concomitant]
     Active Substance: BASILIXIMAB
     Indication: RENAL TRANSPLANT
     Dosage: 20 MG
     Route: 042
     Dates: start: 20140613, end: 20140617
  8. CARMEN [Concomitant]
     Active Substance: LERCANIDIPINE
     Indication: HYPERTENSION
     Dosage: 10 MG, QD
     Route: 065
  9. PRAVASTATIN [Concomitant]
     Active Substance: PRAVASTATIN\PRAVASTATIN SODIUM
     Indication: HYPERLIPIDAEMIA
     Dosage: 20 MG, QD
     Route: 065
     Dates: start: 20140612
  10. DECORTIN H [Concomitant]
     Active Substance: PREDNISOLONE
     Indication: RENAL TRANSPLANT
     Dosage: 20 MG, QD
     Route: 048
     Dates: start: 20140613, end: 20140713
  11. DECORTIN H [Concomitant]
     Active Substance: PREDNISOLONE
     Dosage: 50 MG, QD
     Route: 048
     Dates: start: 20140714, end: 20140728
  12. DECORTIN H [Concomitant]
     Active Substance: PREDNISOLONE
     Dosage: UNK
     Route: 048
     Dates: start: 20140729
  13. MOXONIDIN [Concomitant]
     Active Substance: MOXONIDINE
     Indication: HYPERTENSION
     Dosage: 0.3 MG, BID
     Route: 065
  14. PHYSIOTENS [Concomitant]
     Active Substance: MOXONIDINE
     Indication: HYPERTENSION
     Dosage: 0.3 MG, QD (1X)
     Route: 065
  15. AMLODIPINE [Concomitant]
     Active Substance: AMLODIPINE BESYLATE
     Indication: HYPERTENSION
     Dosage: 5 MG, BID
     Route: 048
  16. DECORTIN H [Concomitant]
     Active Substance: PREDNISOLONE
     Dosage: 5 MG, ONCE/SINGLE
     Route: 048

REACTIONS (4)
  - Renal tubular necrosis [Recovered/Resolved]
  - Kidney transplant rejection [Recovered/Resolved]
  - Kidney transplant rejection [Recovered/Resolved]
  - Kidney transplant rejection [Recovered/Resolved]

NARRATIVE: CASE EVENT DATE: 20140714
